FAERS Safety Report 25025459 (Version 1)
Quarter: 2025Q1

REPORT INFORMATION
  Report Type: Spontaneous
  Country: KR (occurrence: KR)
  Receive Date: 20250228
  Receipt Date: 20250228
  Transmission Date: 20250408
  Serious: Yes (Hospitalization)
  Sender: ELI LILLY AND COMPANY
  Company Number: KR-ELI_LILLY_AND_COMPANY-KR202502014999

PATIENT
  Sex: Male

DRUGS (2)
  1. RETEVMO [Suspect]
     Active Substance: SELPERCATINIB
     Indication: Product used for unknown indication
     Route: 065
  2. RETEVMO [Suspect]
     Active Substance: SELPERCATINIB
     Route: 065

REACTIONS (7)
  - Inflammatory marker increased [Recovered/Resolved]
  - Blood pressure increased [Recovered/Resolved]
  - Dry mouth [Recovered/Resolved]
  - Nausea [Unknown]
  - Vomiting [Unknown]
  - Fatigue [Recovered/Resolved]
  - Pyrexia [Unknown]
